FAERS Safety Report 10913445 (Version 2)
Quarter: 2015Q2

REPORT INFORMATION
  Report Type: Spontaneous
  Country: CO (occurrence: CO)
  Receive Date: 20150313
  Receipt Date: 20150420
  Transmission Date: 20150821
  Serious: Yes (Other)
  Sender: FDA-Public Use
  Company Number: CO-AMGEN-COLSP2015022142

PATIENT
  Age: 56 Year
  Sex: Male

DRUGS (2)
  1. PARICALCITOL. [Concomitant]
     Active Substance: PARICALCITOL
     Dosage: 5 MUG, QD
  2. MIMPARA [Suspect]
     Active Substance: CINACALCET HYDROCHLORIDE
     Indication: HYPERPARATHYROIDISM SECONDARY
     Dosage: 150 MG, QD
     Route: 065
     Dates: start: 201310

REACTIONS (5)
  - Drug ineffective [Unknown]
  - Gastrointestinal disorder [Unknown]
  - Parathyroidectomy [Unknown]
  - No therapeutic response [Unknown]
  - Drug intolerance [Unknown]

NARRATIVE: CASE EVENT DATE: 201312
